FAERS Safety Report 23175739 (Version 6)
Quarter: 2024Q2

REPORT INFORMATION
  Report Type: Report from Study
  Country: US (occurrence: US)
  Receive Date: 20231113
  Receipt Date: 20240617
  Transmission Date: 20240716
  Serious: Yes (Other)
  Sender: FDA-Public Use
  Company Number: US-UCBSA-2023026314

PATIENT
  Sex: Female

DRUGS (13)
  1. FINTEPLA [Suspect]
     Active Substance: FENFLURAMINE
     Indication: Epilepsy
     Dosage: 5.5 MILLILITER, 2X/DAY (BID)
     Dates: start: 20230427
  2. FINTEPLA [Suspect]
     Active Substance: FENFLURAMINE
     Indication: Off label use
     Dosage: 5.5 MILLILITER, 2X/DAY (BID)
     Dates: start: 2023
  3. FINTEPLA [Suspect]
     Active Substance: FENFLURAMINE
     Dosage: 5.5 MILLILITER, 2X/DAY (BID)
     Route: 048
     Dates: start: 2023
  4. FINTEPLA [Suspect]
     Active Substance: FENFLURAMINE
     Dosage: 5.5 MILLILITER, 2X/DAY (BID)
     Dates: start: 2023
  5. FINTEPLA [Suspect]
     Active Substance: FENFLURAMINE
     Dosage: 5.5 MILLILITER, 2X/DAY (BID)
     Dates: start: 2023
  6. FINTEPLA [Suspect]
     Active Substance: FENFLURAMINE
     Dosage: 5.5 MILLILITER, 2X/DAY (BID)
     Dates: start: 2023
  7. FINTEPLA [Suspect]
     Active Substance: FENFLURAMINE
     Dosage: 5.5 MILLILITER, 2X/DAY (BID)
  8. FINTEPLA [Suspect]
     Active Substance: FENFLURAMINE
     Dosage: 5.5 MILLILITER, 2X/DAY (BID)
  9. FINTEPLA [Suspect]
     Active Substance: FENFLURAMINE
     Dosage: 5.5 MILLILITER, 2X/DAY (BID)
  10. FINTEPLA [Suspect]
     Active Substance: FENFLURAMINE
     Dosage: 5.5 MILLILITER, 2X/DAY (BID)
  11. VIMPAT [Suspect]
     Active Substance: LACOSAMIDE
     Indication: Product used for unknown indication
     Dosage: UNK
  12. GUANFACINE [Suspect]
     Active Substance: GUANFACINE
     Indication: Product used for unknown indication
     Dosage: UNK
  13. CLONIDINE [Suspect]
     Active Substance: CLONIDINE
     Indication: Product used for unknown indication
     Dosage: UNK

REACTIONS (20)
  - Seizure [Recovering/Resolving]
  - Petit mal epilepsy [Not Recovered/Not Resolved]
  - Loss of consciousness [Recovered/Resolved]
  - Mydriasis [Recovered/Resolved]
  - Hypersomnia [Not Recovered/Not Resolved]
  - Food refusal [Recovered/Resolved]
  - Fatigue [Recovered/Resolved]
  - Chest discomfort [Unknown]
  - Decreased appetite [Not Recovered/Not Resolved]
  - Abdominal pain upper [Not Recovered/Not Resolved]
  - Constipation [Not Recovered/Not Resolved]
  - Chest pain [Not Recovered/Not Resolved]
  - Amnesia [Unknown]
  - Dizziness [Recovered/Resolved]
  - Headache [Unknown]
  - Insomnia [Not Recovered/Not Resolved]
  - Gastrooesophageal reflux disease [Not Recovered/Not Resolved]
  - Hypotension [Recovered/Resolved]
  - Off label use [Unknown]
  - Drug ineffective [Unknown]

NARRATIVE: CASE EVENT DATE: 20230101
